FAERS Safety Report 11930340 (Version 1)
Quarter: 2016Q1

REPORT INFORMATION
  Report Type: Spontaneous
  Country: US (occurrence: None)
  Receive Date: 20160120
  Receipt Date: 20160120
  Transmission Date: 20160526
  Serious: No
  Sender: FDA-Public Use
  Company Number: None

PATIENT
  Age: 64 Year
  Sex: Female
  Weight: 62.7 kg

DRUGS (2)
  1. RIBAVIRIN. [Suspect]
     Active Substance: RIBAVIRIN
     Indication: HEPATITIS C
     Route: 048
     Dates: start: 20151106
  2. DASABUVIR/OMBITASVIR/PARITAPREVIR/RITONAVIR [Suspect]
     Active Substance: DASABUVIR\OMBITASVIR\PARITAPREVIR\RITONAVIR
     Indication: HEPATITIS C
     Dates: start: 20151106

REACTIONS (9)
  - Blood creatinine increased [None]
  - Blood urea increased [None]
  - Headache [None]
  - Haemoglobin decreased [None]
  - Mobility decreased [None]
  - Fatigue [None]
  - Rhinorrhoea [None]
  - Temperature intolerance [None]
  - Middle insomnia [None]

NARRATIVE: CASE EVENT DATE: 20160114
